FAERS Safety Report 8093831-0 (Version None)
Quarter: 2012Q1

REPORT INFORMATION
  Report Type: 
  Country: None (occurrence: None)
  Receive Date: 20120129
  Receipt Date: 20110912
  Transmission Date: 20120608
  Serious: No
  Sender: FDA-Public Use
  Company Number: US-ABBOTT-11P-163-0854288-00

PATIENT
  Age: 50 Year
  Sex: Female

DRUGS (8)
  1. METHOTREXATE [Concomitant]
     Indication: RHEUMATOID ARTHRITIS
  2. NEURONTIN [Concomitant]
     Indication: INTERVERTEBRAL DISC PROTRUSION
  3. HUMIRA [Suspect]
     Indication: RHEUMATOID ARTHRITIS
     Dates: start: 20110723
  4. HUMIRA [Suspect]
     Indication: SJOGREN'S SYNDROME
  5. PLAQUENIL [Concomitant]
     Indication: SJOGREN'S SYNDROME
  6. SOMA [Concomitant]
     Indication: PRODUCT USED FOR UNKNOWN INDICATION
  7. HUMIRA [Suspect]
     Indication: CUTANEOUS LUPUS ERYTHEMATOSUS
  8. VICODIN [Concomitant]
     Indication: PRODUCT USED FOR UNKNOWN INDICATION

REACTIONS (4)
  - HEAD DISCOMFORT [None]
  - OROPHARYNGEAL PAIN [None]
  - NASAL CONGESTION [None]
  - FATIGUE [None]
